FAERS Safety Report 5158204-9 (Version None)
Quarter: 2006Q4

REPORT INFORMATION
  Report Type: 
  Country: None (occurrence: None)
  Receive Date: 20061121
  Receipt Date: 20061121
  Transmission Date: 20070319
  Serious: Yes (Other)
  Sender: FDA-Public Use
  Company Number: None

PATIENT
  Sex: Female

DRUGS (1)
  1. SERTRALINE [Suspect]
     Dosage: 50 MG
     Dates: start: 20061001

REACTIONS (3)
  - ABDOMINAL DISCOMFORT [None]
  - DIZZINESS [None]
  - PHARMACEUTICAL PRODUCT COMPLAINT [None]
